FAERS Safety Report 8227886-7 (Version None)
Quarter: 2012Q1

REPORT INFORMATION
  Report Type: 
  Country: None (occurrence: None)
  Receive Date: 20120322
  Receipt Date: 20120321
  Transmission Date: 20120608
  Serious: Yes (Other)
  Sender: FDA-Public Use
  Company Number: CN-PFIZER INC-2012063912

PATIENT

DRUGS (1)
  1. CARDURA [Suspect]
     Dosage: UNK
     Route: 048

REACTIONS (2)
  - BLOOD PRESSURE DECREASED [None]
  - ARRHYTHMIA [None]
